FAERS Safety Report 5251216-6 (Version None)
Quarter: 2007Q1

REPORT INFORMATION
  Report Type: 
  Country: None (occurrence: None)
  Receive Date: 20070228
  Receipt Date: 20070226
  Transmission Date: 20070707
  Serious: Yes (Hospitalization)
  Sender: FDA-Public Use
  Company Number: DEWYE776426FEB07

PATIENT
  Age: 53 Year
  Sex: Male

DRUGS (4)
  1. TAZOBAC [Suspect]
     Indication: NEUTROPENIC INFECTION
     Route: 042
     Dates: start: 20070124, end: 20070125
  2. TAZOBAC [Suspect]
     Indication: PYREXIA
  3. DIFLUCAN [Concomitant]
     Indication: NEUTROPENIC INFECTION
     Dosage: 800 MG
     Route: 042
     Dates: start: 20070124, end: 20070125
  4. DIFLUCAN [Concomitant]
     Indication: PYREXIA

REACTIONS (3)
  - CARDIOVASCULAR DISORDER [None]
  - RESPIRATORY FAILURE [None]
  - SEPSIS [None]
